FAERS Safety Report 7969073-3 (Version None)
Quarter: 2011Q4

REPORT INFORMATION
  Report Type: 
  Country: None (occurrence: None)
  Receive Date: 20111209
  Receipt Date: 20111130
  Transmission Date: 20120403
  Serious: Yes (Hospitalization)
  Sender: FDA-Public Use
  Company Number: US-ASTRAZENECA-2010SE23160

PATIENT
  Age: 53 Year
  Sex: Female

DRUGS (1)
  1. PULMICORT [Suspect]
     Route: 055

REACTIONS (6)
  - CELLULITIS [None]
  - ASTHMA [None]
  - DEEP VEIN THROMBOSIS [None]
  - THROMBOSIS [None]
  - DYSPNOEA [None]
  - DRUG DOSE OMISSION [None]
